FAERS Safety Report 9235913 (Version 1)
Quarter: 2013Q2

REPORT INFORMATION
  Report Type: Spontaneous
  Country: US (occurrence: US)
  Receive Date: 20130417
  Receipt Date: 20130417
  Transmission Date: 20140414
  Serious: No
  Sender: FDA-Public Use
  Company Number: US-BAYER-2013-034299

PATIENT
  Age: 61 Year
  Sex: Male
  Weight: 151.02 kg

DRUGS (6)
  1. CIPRO [Suspect]
     Indication: TOOTH INFECTION
     Dosage: 500 MG, BID
     Dates: start: 201302, end: 201302
  2. CLEOCIN [Suspect]
     Indication: TOOTH INFECTION
     Dosage: 300 MG, BID
     Dates: start: 201302, end: 201302
  3. ATORVASTATIN CALCIUM [Concomitant]
     Indication: BLOOD CHOLESTEROL DECREASED
     Dosage: 40 MG, QD
  4. FUROSEMIDE [Concomitant]
     Indication: OEDEMA
     Dosage: 40 MG, BID
  5. HYDROCHLOROTHIAZIDE [Concomitant]
     Indication: HYPERTENSION
     Dosage: 12.5 MG, QD
  6. LYRICA [Concomitant]
     Indication: DIABETIC NEUROPATHY
     Dosage: 150 MG, TID
     Dates: start: 2011

REACTIONS (1)
  - Diarrhoea [Recovered/Resolved]
